FAERS Safety Report 11024840 (Version 1)
Quarter: 2015Q2

REPORT INFORMATION
  Report Type: Spontaneous
  Country: US (occurrence: None)
  Receive Date: 20150413
  Receipt Date: 20150413
  Transmission Date: 20150821
  Serious: Yes (Other)
  Sender: FDA-Public Use
  Company Number: None

PATIENT
  Age: 30 Year
  Sex: Male
  Weight: 78.93 kg

DRUGS (11)
  1. HALOPERIDOL. [Concomitant]
     Active Substance: HALOPERIDOL
  2. THIAMINE [Concomitant]
     Active Substance: THIAMINE
  3. METOPROLOL [Concomitant]
     Active Substance: METOPROLOL
  4. HALOPERIDOL 10 MG [Suspect]
     Active Substance: HALOPERIDOL
     Indication: AGITATION
     Route: 030
     Dates: start: 20150315, end: 20150315
  5. LORAZEPAM. [Concomitant]
     Active Substance: LORAZEPAM
  6. NICOTINE POLACRILEX [Concomitant]
     Active Substance: NICOTINE
  7. PANTOPRAZOLE [Concomitant]
     Active Substance: PANTOPRAZOLE SODIUM
  8. ALOH/MGOH/SIMTH [Concomitant]
  9. BUSPIRONE [Concomitant]
     Active Substance: BUSPIRONE HYDROCHLORIDE
  10. GABAPENTIN. [Concomitant]
     Active Substance: GABAPENTIN
  11. PAROXETINE [Concomitant]
     Active Substance: PAROXETINE\PAROXETINE HYDROCHLORIDE

REACTIONS (4)
  - Muscle contractions involuntary [None]
  - Trismus [None]
  - Muscle spasms [None]
  - Speech disorder [None]

NARRATIVE: CASE EVENT DATE: 20150316
